FAERS Safety Report 7522722-6 (Version None)
Quarter: 2011Q2

REPORT INFORMATION
  Report Type: 
  Country: None (occurrence: None)
  Receive Date: 20110603
  Receipt Date: 20110601
  Transmission Date: 20111010
  Serious: Yes (Hospitalization, Other)
  Sender: FDA-Public Use
  Company Number: ES-ABBOTT-11P-144-0729489-00

PATIENT
  Age: 24 Year
  Sex: Female

DRUGS (2)
  1. HUMIRA [Suspect]
     Route: 058
     Dates: start: 20091001, end: 20110523
  2. HUMIRA [Suspect]
     Indication: CROHN'S DISEASE
     Dosage: LOAD DOSE
     Route: 058
     Dates: start: 20091001, end: 20091001

REACTIONS (4)
  - PULMONARY TUBERCULOSIS [None]
  - PYREXIA [None]
  - COUGH [None]
  - PRODUCTIVE COUGH [None]
